FAERS Safety Report 23133040 (Version 1)
Quarter: 2023Q4

REPORT INFORMATION
  Report Type: Spontaneous
  Country: US (occurrence: US)
  Receive Date: 20231101
  Receipt Date: 20231101
  Transmission Date: 20240110
  Serious: No
  Sender: FDA-Public Use
  Company Number: US-BRISTOL-MYERS SQUIBB COMPANY-2023-153155

PATIENT
  Age: 66 Year
  Sex: Male
  Weight: 103.42 kg

DRUGS (1)
  1. ONUREG [Suspect]
     Active Substance: AZACITIDINE
     Indication: Acute monocytic leukaemia
     Dosage: 14DON,14DOFF
     Route: 048

REACTIONS (2)
  - Product packaging quantity issue [Unknown]
  - Intentional product misuse [Unknown]
